FAERS Safety Report 7404461-5 (Version None)
Quarter: 2011Q2

REPORT INFORMATION
  Report Type: 
  Country: None (occurrence: None)
  Receive Date: 20110408
  Receipt Date: 20110328
  Transmission Date: 20111010
  Serious: Yes (Hospitalization)
  Sender: FDA-Public Use
  Company Number: FR-GILEAD-E2B_00001181

PATIENT
  Sex: Male
  Weight: 108 kg

DRUGS (2)
  1. TADALAFIL [Suspect]
     Indication: PULMONARY ARTERIAL HYPERTENSION
     Dosage: 20MG PER DAY
     Route: 048
  2. AMBRISENTAN [Suspect]
     Indication: PULMONARY ARTERIAL HYPERTENSION
     Dosage: 5MG PER DAY
     Route: 048

REACTIONS (4)
  - SEPSIS [None]
  - ACUTE RESPIRATORY FAILURE [None]
  - CARDIAC FAILURE [None]
  - ARRHYTHMIA [None]
